FAERS Safety Report 11107488 (Version 1)
Quarter: 2015Q2

REPORT INFORMATION
  Report Type: Report from Study
  Country: ES (occurrence: ES)
  Receive Date: 20150512
  Receipt Date: 20150512
  Transmission Date: 20150821
  Serious: Yes (Death)
  Sender: FDA-Public Use
  Company Number: ES-BRISTOL-MYERS SQUIBB COMPANY-BMS-2015-028439

PATIENT
  Age: 66 Year
  Sex: Female
  Weight: 87 kg

DRUGS (1)
  1. APIXABAN [Suspect]
     Active Substance: APIXABAN
     Indication: CEREBROVASCULAR ACCIDENT PROPHYLAXIS
     Dosage: 2.5 MG, UNK
     Route: 048
     Dates: start: 20150206, end: 20150210

REACTIONS (3)
  - Hypotension [Fatal]
  - Renal failure [Fatal]
  - Cardiac ablation [Fatal]

NARRATIVE: CASE EVENT DATE: 20150413
